FAERS Safety Report 4357810-9 (Version None)
Quarter: 2004Q2

REPORT INFORMATION
  Report Type: 
  Country: None (occurrence: None)
  Receive Date: 20040512
  Receipt Date: 20040421
  Transmission Date: 20050107
  Serious: Yes (Hospitalization)
  Sender: FDA-Public Use
  Company Number: 430014P04USA

PATIENT
  Age: 67 Year
  Sex: Male
  Weight: 94.4 kg

DRUGS (3)
  1. NOVANTRONE [Suspect]
     Indication: MULTIPLE SCLEROSIS
     Dosage: 12 MG/M2, 1 IN 3 MONTHS, INTRAVENOUS
     Route: 042
     Dates: start: 20020501, end: 20040226
  2. TOLTERODINE TARTRATE [Concomitant]
  3. SILDENAFIL CITRATE [Concomitant]

REACTIONS (15)
  - BLOOD CREATININE INCREASED [None]
  - BRONCHITIS [None]
  - CARDIAC FAILURE CONGESTIVE [None]
  - CARDIOMYOPATHY [None]
  - CORONARY ARTERY DISEASE [None]
  - DRUG TOXICITY [None]
  - HYPOTENSION [None]
  - ISCHAEMIC CARDIOMYOPATHY [None]
  - MULTIPLE SCLEROSIS [None]
  - OEDEMA [None]
  - PLEURAL EFFUSION [None]
  - RALES [None]
  - THERAPY NON-RESPONDER [None]
  - TROPONIN INCREASED [None]
  - VENTRICULAR DYSFUNCTION [None]
